FAERS Safety Report 4535241-6 (Version None)
Quarter: 2004Q4

REPORT INFORMATION
  Report Type: 
  Country: None (occurrence: None)
  Receive Date: 20041214
  Receipt Date: 20040820
  Transmission Date: 20050328
  Serious: Yes (Other)
  Sender: FDA-Public Use
  Company Number: 2004229806US

PATIENT
  Sex: Female

DRUGS (8)
  1. BEXTRA [Suspect]
     Indication: ARTHROPATHY
     Dosage: SEE IMAGE
     Route: 048
     Dates: end: 20030101
  2. BEXTRA [Suspect]
     Indication: ARTHROPATHY
     Dosage: SEE IMAGE
     Route: 048
     Dates: start: 20040812
  3. BEXTRA [Suspect]
     Indication: ARTHROPATHY
     Dosage: SEE IMAGE
     Route: 048
     Dates: start: 20040815
  4. BEXTRA [Suspect]
     Indication: ARTHROPATHY
     Dosage: SEE IMAGE
     Route: 048
     Dates: start: 20040816
  5. CATAPRES [Concomitant]
  6. FLOVENT [Concomitant]
  7. SINGULAIR [Concomitant]
  8. ASPIRIN [Concomitant]

REACTIONS (2)
  - DRUG INEFFECTIVE [None]
  - HYPERTENSION [None]
